FAERS Safety Report 9292503 (Version 3)
Quarter: 2013Q3

REPORT INFORMATION
  Report Type: Spontaneous
  Country: US (occurrence: US)
  Receive Date: 20130516
  Receipt Date: 20130717
  Transmission Date: 20140515
  Serious: Yes (Other)
  Sender: FDA-Public Use
  Company Number: US-PFIZER INC-2013150751

PATIENT
  Age: 21 Year
  Sex: Male
  Weight: 68.93 kg

DRUGS (2)
  1. CHANTIX [Suspect]
     Indication: SMOKING CESSATION THERAPY
     Dosage: 0.5 MG, DAILY
     Route: 048
     Dates: start: 20130430, end: 201305
  2. CHANTIX [Suspect]
     Dosage: UNK
     Route: 048
     Dates: start: 201305, end: 20130510

REACTIONS (11)
  - Mood swings [Unknown]
  - Loss of consciousness [Unknown]
  - Personality change [Recovered/Resolved]
  - Nausea [Unknown]
  - Vomiting [Unknown]
  - Oral mucosal blistering [Unknown]
  - Oral disorder [Unknown]
  - Oral pain [Unknown]
  - Oral discomfort [Unknown]
  - Regurgitation [Unknown]
  - Alcohol abuse [Unknown]
